FAERS Safety Report 15813711 (Version 1)
Quarter: 2019Q1

REPORT INFORMATION
  Report Type: Spontaneous
  Country: ES (occurrence: ES)
  Receive Date: 20190111
  Receipt Date: 20190111
  Transmission Date: 20190417
  Serious: Yes (Disabling, Other)
  Sender: FDA-Public Use
  Company Number: ES-JNJFOC-20190106740

PATIENT
  Age: 38 Year
  Sex: Male

DRUGS (1)
  1. LOMPER [Suspect]
     Active Substance: MEBENDAZOLE
     Indication: ASCARIASIS
     Route: 048

REACTIONS (4)
  - Chronic fatigue syndrome [Recovering/Resolving]
  - Overdose [Recovering/Resolving]
  - Lactose intolerance [Recovered/Resolved]
  - Gluten sensitivity [Recovered/Resolved]
